FAERS Safety Report 5392144-5 (Version None)
Quarter: 2007Q3

REPORT INFORMATION
  Report Type: 
  Country: None (occurrence: None)
  Receive Date: 20070718
  Receipt Date: 20070718
  Transmission Date: 20080115
  Serious: Yes (Hospitalization)
  Sender: FDA-Public Use
  Company Number: None

PATIENT
  Age: 63 Year
  Sex: Male

DRUGS (1)
  1. PHENYTOIN [Suspect]
     Indication: CONVULSION
     Dosage: 200MG BID PO
     Route: 048
     Dates: start: 20070427, end: 20070508

REACTIONS (6)
  - AMMONIA INCREASED [None]
  - ANTICONVULSANT DRUG LEVEL INCREASED [None]
  - CONFUSIONAL STATE [None]
  - HALLUCINATION [None]
  - MENTAL STATUS CHANGES [None]
  - SEDATION [None]
